FAERS Safety Report 10092045 (Version 3)
Quarter: 2015Q3

REPORT INFORMATION
  Report Type: Spontaneous
  Country: US (occurrence: US)
  Receive Date: 20140421
  Receipt Date: 20150814
  Transmission Date: 20151125
  Serious: No
  Sender: FDA-Public Use
  Company Number: US-GILEAD-2013-0070547

PATIENT
  Age: 29 Year
  Sex: Female

DRUGS (7)
  1. AMLODIPINE [Concomitant]
     Active Substance: AMLODIPINE BESYLATE
  2. TADALAFIL [Concomitant]
     Active Substance: TADALAFIL
  3. LISINOPRIL. [Concomitant]
     Active Substance: LISINOPRIL
  4. ADCIRCA [Concomitant]
     Active Substance: TADALAFIL
  5. ASPIRIN. [Concomitant]
     Active Substance: ASPIRIN
  6. WARFARIN [Concomitant]
     Active Substance: WARFARIN
  7. LETAIRIS [Suspect]
     Active Substance: AMBRISENTAN
     Indication: PULMONARY ARTERIAL HYPERTENSION
     Dosage: 5 MG, QD
     Route: 048
     Dates: start: 20130120, end: 20130129

REACTIONS (2)
  - Vision blurred [Recovering/Resolving]
  - Retinal exudates [Recovered/Resolved]
